FAERS Safety Report 8853458 (Version 2)
Quarter: 2012Q4

REPORT INFORMATION
  Report Type: 
  Country: DE (occurrence: DE)
  Receive Date: 20121022
  Receipt Date: 20121205
  Transmission Date: 20130627
  Serious: Yes (Disabling)
  Sender: FDA-Public Use
  Company Number: DE-ROCHE-1147663

PATIENT
  Sex: Male

DRUGS (3)
  1. MABTHERA [Suspect]
     Indication: MULTIPLE SCLEROSIS
     Route: 042
     Dates: start: 2007
  2. CORTISON [Concomitant]
  3. GABAPENTIN [Concomitant]
     Indication: NEURALGIA
     Route: 048
     Dates: start: 20070301

REACTIONS (1)
  - Deafness bilateral [Unknown]
